FAERS Safety Report 7380677-1 (Version None)
Quarter: 2011Q1

REPORT INFORMATION
  Report Type: 
  Country: None (occurrence: None)
  Receive Date: 20110321
  Receipt Date: 20110308
  Transmission Date: 20110831
  Serious: Yes (Disabling)
  Sender: FDA-Public Use
  Company Number: 2011MA002298

PATIENT
  Sex: Male

DRUGS (1)
  1. METOCLOPRAMIDE [Suspect]
     Dates: start: 20070801, end: 20081201

REACTIONS (9)
  - MENTAL DISORDER [None]
  - ANXIETY [None]
  - EMOTIONAL DISTRESS [None]
  - EXTRAPYRAMIDAL DISORDER [None]
  - ILL-DEFINED DISORDER [None]
  - PAIN [None]
  - NERVOUS SYSTEM DISORDER [None]
  - DEFORMITY [None]
  - INJURY [None]
